FAERS Safety Report 5776272-8 (Version None)
Quarter: 2008Q2

REPORT INFORMATION
  Report Type: 
  Country: None (occurrence: None)
  Receive Date: 20080616
  Receipt Date: 20080531
  Transmission Date: 20081010
  Serious: Yes (Death, Hospitalization, Other)
  Sender: FDA-Public Use
  Company Number: A-US2005-09586

PATIENT
  Age: 79 Year
  Sex: Female
  Weight: 44.4 kg

DRUGS (19)
  1. TRACLEER [Suspect]
     Indication: PULMONARY HYPERTENSION
     Dosage: 125 MG, BID, ORAL; 62.5 MG, BID, ORAL; ORAL
     Route: 048
     Dates: start: 20031002, end: 20031104
  2. TRACLEER [Suspect]
     Indication: PULMONARY HYPERTENSION
     Dosage: 125 MG, BID, ORAL; 62.5 MG, BID, ORAL; ORAL
     Route: 048
     Dates: start: 20031105, end: 20080314
  3. TRACLEER [Suspect]
     Indication: PULMONARY HYPERTENSION
     Dosage: 125 MG, BID, ORAL; 62.5 MG, BID, ORAL; ORAL
     Route: 048
     Dates: start: 20030415
  4. CLINORIL [Suspect]
     Dates: start: 20030801
  5. IMURAN [Suspect]
     Dates: start: 20030801
  6. METHOTREXATE [Suspect]
     Dosage: 2.5 MG TIW
     Dates: start: 19870101, end: 20020101
  7. NAPROSYN [Suspect]
  8. LASIX [Concomitant]
  9. NIFEDIPINE [Concomitant]
  10. LANOXIN [Concomitant]
  11. LORAZEPAM [Concomitant]
  12. SYNTHROID [Concomitant]
  13. GABAPENTIN [Concomitant]
  14. PREVACID [Concomitant]
  15. COUMADIN [Concomitant]
  16. CIALIS [Concomitant]
  17. ACETAMINOPHEN [Concomitant]
  18. MULTIPLE VITAMINS (ERGOCALCIFEROL, FOLIC ACID, RETINOL, ASCORBIC ACID, [Concomitant]
  19. CALCIUM (CALCIUM) [Concomitant]

REACTIONS (11)
  - ABDOMINAL PAIN [None]
  - ASCITES [None]
  - AUTOIMMUNE HEPATITIS [None]
  - CHRONIC OBSTRUCTIVE PULMONARY DISEASE [None]
  - DEVICE INTERACTION [None]
  - DIARRHOEA [None]
  - HEPATIC CIRRHOSIS [None]
  - HEPATITIS TOXIC [None]
  - LACTOSE INTOLERANCE [None]
  - PANCREATITIS [None]
  - PANCREATITIS ACUTE [None]
